FAERS Safety Report 21392937 (Version 1)
Quarter: 2022Q3

REPORT INFORMATION
  Report Type: Spontaneous
  Country: JP (occurrence: JP)
  Receive Date: 20220929
  Receipt Date: 20220929
  Transmission Date: 20221027
  Serious: Yes (Death, Hospitalization, Other)
  Sender: FDA-Public Use
  Company Number: JP-BRISTOL-MYERS SQUIBB COMPANY-2022-113885

PATIENT
  Sex: Male

DRUGS (4)
  1. ABRAXANE [Suspect]
     Active Substance: PACLITAXEL
     Indication: Pancreatic carcinoma
     Route: 041
  2. TS-1 [Suspect]
     Active Substance: GIMERACIL\OTERACIL\TEGAFUR
     Indication: Pancreatic carcinoma
     Dosage: 2 CYCLES IN COMBINATION WITH GEMCITABINE HYDROCHLORIDE
     Route: 048
  3. GEMCITABINE [Suspect]
     Active Substance: GEMCITABINE
     Indication: Pancreatic carcinoma
     Dosage: 1ST AND 2ND CYCLE IN COMBINATION WITH TS-1
     Route: 041
  4. GEMCITABINE [Suspect]
     Active Substance: GEMCITABINE
     Indication: Pancreatic carcinoma
     Dosage: IN COMBINATION WITH ABRAXANE
     Route: 041

REACTIONS (3)
  - Malignant neoplasm progression [Fatal]
  - Erythema multiforme [Unknown]
  - Rash [Unknown]
